FAERS Safety Report 24701302 (Version 3)
Quarter: 2025Q1

REPORT INFORMATION
  Report Type: Report from Study
  Country: US (occurrence: US)
  Receive Date: 20241205
  Receipt Date: 20250116
  Transmission Date: 20250408
  Serious: Yes (Other)
  Sender: AURINIA PHARMACEUTICALS
  Company Number: US-OTSUKA PHARMACEUTICAL NETHERLANDS B.V.-AUR-007332

PATIENT
  Age: 27 Year
  Sex: Female
  Weight: 77.2 kg

DRUGS (6)
  1. LUPKYNIS [Suspect]
     Active Substance: VOCLOSPORIN
     Indication: Systemic lupus erythematosus
     Route: 048
     Dates: start: 20230413, end: 20240327
  2. HYDROXYCHLOROQUINE [Concomitant]
     Active Substance: HYDROXYCHLOROQUINE
     Indication: Systemic lupus erythematosus
     Dosage: 300 MILLIGRAM, QD
     Route: 048
     Dates: start: 20240416
  3. HYDROXYCHLOROQUINE [Concomitant]
     Active Substance: HYDROXYCHLOROQUINE
     Indication: Lupus nephritis
  4. HYDROXYCHLOROQUINE [Concomitant]
     Active Substance: HYDROXYCHLOROQUINE
     Indication: Rheumatoid arthritis
  5. AZATHIOPRINE [Concomitant]
     Active Substance: AZATHIOPRINE
     Indication: Lupus nephritis
     Dosage: 100 MILLIGRAM, QD
     Route: 048
     Dates: start: 20240522
  6. OMEPRAZOLE [Concomitant]
     Active Substance: OMEPRAZOLE
     Indication: Gastritis
     Dosage: 20 MILLIGRAM, QD
     Route: 048
     Dates: start: 20240624

REACTIONS (1)
  - Gingival hypertrophy [Recovered/Resolved]

NARRATIVE: CASE EVENT DATE: 20240102
